FAERS Safety Report 4389730-8 (Version None)
Quarter: 2004Q2

REPORT INFORMATION
  Report Type: 
  Country: None (occurrence: None)
  Receive Date: 20040625
  Receipt Date: 20040608
  Transmission Date: 20050107
  Serious: Yes (Hospitalization)
  Sender: FDA-Public Use
  Company Number: B0311814A

PATIENT
  Age: 75 Year
  Sex: Female

DRUGS (5)
  1. PAXIL [Suspect]
     Indication: ILL-DEFINED DISORDER
     Dosage: PER DAY/ ORAL
     Route: 048
  2. SETIPTILINE MALEATE [Concomitant]
  3. CLOXAZOLAM [Concomitant]
  4. BROTIZOLAM [Concomitant]
  5. FLUNITRAZEPAM [Concomitant]

REACTIONS (9)
  - ANOREXIA [None]
  - ANXIETY [None]
  - DISORIENTATION [None]
  - DYSARTHRIA [None]
  - DYSLALIA [None]
  - INAPPROPRIATE ANTIDIURETIC HORMONE SECRETION [None]
  - MALAISE [None]
  - NAUSEA [None]
  - NEOPLASM SKIN [None]
